FAERS Safety Report 24754137 (Version 2)
Quarter: 2024Q4

REPORT INFORMATION
  Report Type: Spontaneous
  Country: JP (occurrence: JP)
  Receive Date: 20241219
  Receipt Date: 20241223
  Transmission Date: 20250114
  Serious: No
  Sender: LEO PHARM
  Company Number: JP-LEO Pharma-376124

PATIENT
  Age: 17 Year
  Sex: Male

DRUGS (1)
  1. ADBRY [Suspect]
     Active Substance: TRALOKINUMAB-LDRM
     Indication: Dermatitis atopic
     Dosage: INDUCTION, SINGLE DOSE
     Route: 058
     Dates: start: 20241204

REACTIONS (1)
  - Presyncope [Recovered/Resolved]

NARRATIVE: CASE EVENT DATE: 20241204
